FAERS Safety Report 8936849 (Version 2)
Quarter: 2013Q1

REPORT INFORMATION
  Report Type: Spontaneous
  Country: GB (occurrence: GB)
  Receive Date: 20121130
  Receipt Date: 20130221
  Transmission Date: 20140127
  Serious: Yes (Other)
  Sender: FDA-Public Use
  Company Number: PHFR2012GB006230

PATIENT
  Sex: Male

DRUGS (2)
  1. CLOZARIL [Suspect]
     Indication: SCHIZOPHRENIA
     Dosage: FIVE TIMES
     Route: 048
     Dates: start: 20080910
  2. CLOZARIL [Suspect]
     Dosage: 1-2 TIMES

REACTIONS (1)
  - Fall [Unknown]
